FAERS Safety Report 18284445 (Version 2)
Quarter: 2020Q3

REPORT INFORMATION
  Report Type: Report from Study
  Country: PK (occurrence: PK)
  Receive Date: 20200918
  Receipt Date: 20200925
  Transmission Date: 20201103
  Serious: Yes (Death)
  Sender: FDA-Public Use
  Company Number: NVSC2020PK254863

PATIENT
  Sex: Male

DRUGS (7)
  1. COMBIVAIR [Concomitant]
     Indication: CHRONIC OBSTRUCTIVE PULMONARY DISEASE
     Dosage: 400 MG, BID
     Route: 048
     Dates: start: 20190110
  2. EXFORGE [Suspect]
     Active Substance: AMLODIPINE BESYLATE\VALSARTAN
     Indication: HYPERTENSION
     Dosage: 1 DF, QD
     Route: 048
     Dates: start: 20190110
  3. INSULIN [Concomitant]
     Active Substance: INSULIN NOS
     Indication: PRODUCT USED FOR UNKNOWN INDICATION
     Dosage: UNK
     Route: 065
  4. LOWPLAT [Concomitant]
     Indication: ANGINA PECTORIS
     Dosage: 75 MG, QD
     Route: 048
     Dates: start: 20190110
  5. LASIX [Concomitant]
     Active Substance: FUROSEMIDE
     Indication: DIURETIC THERAPY
     Dosage: 40 MG, BID
     Route: 048
     Dates: start: 20190110
  6. PREGY [Concomitant]
     Indication: NEURALGIA
     Dosage: 75 MG, QD
     Route: 048
     Dates: start: 20190110
  7. LIPIGET [Concomitant]
     Indication: HYPERCHOLESTEROLAEMIA
     Dosage: 10 MG, QD
     Route: 048
     Dates: start: 20190110

REACTIONS (5)
  - Hypoglycaemia [Unknown]
  - Blood glucose decreased [Fatal]
  - Asthenia [Unknown]
  - Irritability [Unknown]
  - Tachycardia [Unknown]
